FAERS Safety Report 16816987 (Version 1)
Quarter: 2019Q3

REPORT INFORMATION
  Report Type: Spontaneous
  Country: US (occurrence: US)
  Receive Date: 20190917
  Receipt Date: 20190917
  Transmission Date: 20191005
  Serious: Yes (Hospitalization, Other)
  Sender: FDA-Public Use
  Company Number: US-JNJFOC-20190916367

PATIENT
  Age: 92 Year
  Sex: Female
  Weight: 47 kg

DRUGS (2)
  1. IMBRUVICA [Suspect]
     Active Substance: IBRUTINIB
     Indication: PRODUCT USED FOR UNKNOWN INDICATION
     Dosage: UNK
     Route: 065
  2. IMBRUVICA [Suspect]
     Active Substance: IBRUTINIB
     Dosage: UNK UNK, QOD
     Route: 065

REACTIONS (5)
  - Rash [Recovered/Resolved]
  - Blood uric acid increased [Recovered/Resolved]
  - Deafness [Not Recovered/Not Resolved]
  - Blood potassium increased [Recovered/Resolved]
  - White blood cell count increased [Recovered/Resolved]

NARRATIVE: CASE EVENT DATE: 2019
